FAERS Safety Report 6213290-X (Version None)
Quarter: 2009Q2

REPORT INFORMATION
  Report Type: 
  Country: None (occurrence: None)
  Receive Date: 20090601
  Receipt Date: 20090515
  Transmission Date: 20091009
  Serious: Yes (Hospitalization, Disabling)
  Sender: FDA-Public Use
  Company Number: 279324

PATIENT
  Age: 58 Year
  Sex: Female

DRUGS (1)
  1. CARBOPLATIN [Suspect]
     Indication: OVARIAN CANCER
     Dosage: 420 MG, INTRAVENOUS
     Route: 042
     Dates: start: 20090123, end: 20090305

REACTIONS (2)
  - DYSPNOEA [None]
  - LABYRINTHITIS [None]
